FAERS Safety Report 22323920 (Version 1)
Quarter: 2023Q2

REPORT INFORMATION
  Report Type: Spontaneous
  Country: US (occurrence: None)
  Receive Date: 20230512
  Receipt Date: 20230512
  Transmission Date: 20230721
  Serious: Yes (unspecified)
  Sender: FDA-Public Use
  Company Number: None

PATIENT
  Age: 16 Year
  Sex: Male
  Weight: 62.1 kg

DRUGS (1)
  1. METHOTREXATE [Suspect]
     Active Substance: METHOTREXATE
     Dosage: 0.6 ML ONCE INTRATHECAL?
     Route: 037
     Dates: start: 20230315, end: 20230315

REACTIONS (1)
  - Leukoencephalopathy [None]

NARRATIVE: CASE EVENT DATE: 20230322
